FAERS Safety Report 22701272 (Version 4)
Quarter: 2024Q4

REPORT INFORMATION
  Report Type: Report from Study
  Country: US (occurrence: US)
  Receive Date: 20230713
  Receipt Date: 20241011
  Transmission Date: 20250115
  Serious: Yes (Other)
  Sender: NOVARTIS
  Company Number: US-002147023-NVSC2023US154060

PATIENT
  Age: 77 Year
  Sex: Male

DRUGS (5)
  1. ENTRESTO [Suspect]
     Active Substance: SACUBITRIL\VALSARTAN
     Indication: Cardiac failure
     Dosage: 4 DOSAGE FORM, QD (24/26 MG)
     Route: 065
     Dates: start: 202301
  2. ENTRESTO [Suspect]
     Active Substance: SACUBITRIL\VALSARTAN
     Dosage: UNK (STRONGEST DOSE)
     Route: 065
  3. ENTRESTO [Suspect]
     Active Substance: SACUBITRIL\VALSARTAN
     Dosage: UNK (MIDDLE DOSE)
     Route: 065
  4. JARDIANCE [Suspect]
     Active Substance: EMPAGLIFLOZIN
     Indication: Product used for unknown indication
     Dosage: UNK
     Route: 065
     Dates: start: 202301
  5. LIPITOR [Suspect]
     Active Substance: ATORVASTATIN CALCIUM
     Indication: Product used for unknown indication
     Dosage: UNK
     Route: 065

REACTIONS (9)
  - Ejection fraction decreased [Not Recovered/Not Resolved]
  - Hypotension [Not Recovered/Not Resolved]
  - Balance disorder [Recovering/Resolving]
  - Fatigue [Recovering/Resolving]
  - Fluid retention [Recovering/Resolving]
  - Dizziness [Unknown]
  - Arthralgia [Unknown]
  - Bone pain [Unknown]
  - Wrong technique in product usage process [Unknown]

NARRATIVE: CASE EVENT DATE: 20230201
